FAERS Safety Report 9147063 (Version 1)
Quarter: 2013Q1

REPORT INFORMATION
  Report Type: Spontaneous
  Country: US (occurrence: None)
  Receive Date: 20130204
  Receipt Date: 20130204
  Transmission Date: 20140127
  Serious: Yes (Death)
  Sender: FDA-Public Use
  Company Number: NSR_00980_2013

PATIENT
  Age: 45 Year
  Sex: Male

DRUGS (5)
  1. TRAMADOL [Suspect]
     Indication: PRODUCT USED FOR UNKNOWN INDICATION
     Route: 055
  2. AMPHETAMINE [Suspect]
     Route: 055
  3. ACETAMINOPHEN W/HYDROCODONE [Suspect]
     Dosage: (DF)
     Route: 055
  4. CYCLOBENZAPRINE [Suspect]
     Dosage: (DF)
     Route: 055
  5. METHOCARBAMOL [Suspect]
     Dosage: (DF)
     Route: 055

REACTIONS (2)
  - Drug abuse [None]
  - Poisoning [None]
